FAERS Safety Report 8183648-0 (Version None)
Quarter: 2012Q1

REPORT INFORMATION
  Report Type: 
  Country: None (occurrence: None)
  Receive Date: 20120130
  Receipt Date: 20111112
  Transmission Date: 20120608
  Serious: Yes (Other)
  Sender: FDA-Public Use
  Company Number: 045587

PATIENT
  Sex: Male

DRUGS (1)
  1. LEVETIRACETAM [Suspect]
     Dosage: 2000 MG, ?000 MG DAILY
     Dates: start: 20070701, end: 20070701

REACTIONS (1)
  - DRUG INEFFECTIVE [None]
